FAERS Safety Report 9856387 (Version 3)
Quarter: 2014Q1

REPORT INFORMATION
  Report Type: Spontaneous
  Country: US (occurrence: US)
  Receive Date: 20140130
  Receipt Date: 20140321
  Transmission Date: 20141002
  Serious: Yes (Hospitalization, Disabling)
  Sender: FDA-Public Use
  Company Number: US-JNJFOC-20140114167

PATIENT
  Age: 59 Year
  Sex: Male
  Weight: 121.56 kg

DRUGS (11)
  1. INVOKANA [Suspect]
     Indication: DIABETES MELLITUS
     Route: 048
     Dates: start: 20131204, end: 20131227
  2. BUSPAR [Concomitant]
     Indication: ANXIETY
  3. CYMBALTA [Concomitant]
     Indication: ANXIETY
  4. NEURONTIN [Concomitant]
     Indication: ANXIETY
     Dosage: 600 MG EVERY MORNING AND 300 MG EVERY EVENING
  5. NOVOLOG [Concomitant]
     Indication: DIABETES MELLITUS
     Dosage: 30 U/DAY
  6. METFORMIN [Concomitant]
     Indication: DIABETES MELLITUS
  7. LANTUS [Concomitant]
     Indication: DIABETES MELLITUS
     Dates: end: 201312
  8. LANTUS [Concomitant]
     Indication: DIABETES MELLITUS
     Dates: start: 201312
  9. CRESTOR [Concomitant]
  10. METOPROLOL [Concomitant]
  11. LISINOPRIL/HCTZ [Concomitant]

REACTIONS (2)
  - Balanoposthitis [Recovering/Resolving]
  - Atrial flutter [Recovering/Resolving]
